FAERS Safety Report 9542441 (Version 3)
Quarter: 2013Q4

REPORT INFORMATION
  Report Type: Spontaneous
  Country: US (occurrence: None)
  Receive Date: 20130918
  Receipt Date: 20131219
  Transmission Date: 20140711
  Serious: Yes (Death, Life-Threatening, Hospitalization, Other)
  Sender: FDA-Public Use
  Company Number: 2013US002448

PATIENT
  Age: 39 Year
  Sex: Female
  Weight: 50 kg

DRUGS (4)
  1. ICLUSIG [Suspect]
     Indication: CHRONIC MYELOID LEUKAEMIA
     Route: 048
     Dates: start: 20130312, end: 20130325
  2. METHIMAZOLE (METHIMAZOLE) [Concomitant]
  3. TENORMIN (ATENOLOL) [Concomitant]
  4. TYLENOL W/CODEINE NO. 3 (CODEINE PHOSPHATE, PARACETAMOL) [Concomitant]

REACTIONS (19)
  - Convulsion [None]
  - Grand mal convulsion [None]
  - Hypertension [None]
  - Encephalopathy [None]
  - Anaemia [None]
  - Thrombocytopenia [None]
  - Fatigue [None]
  - White blood cell count increased [None]
  - Haemorrhage [None]
  - Loss of consciousness [None]
  - Abdominal pain [None]
  - Posterior reversible encephalopathy syndrome [None]
  - Progressive multifocal leukoencephalopathy [None]
  - Epilepsy [None]
  - Cerebral haemorrhage [None]
  - Chronic myeloid leukaemia [None]
  - Malignant neoplasm progression [None]
  - Disease progression [None]
  - Upper respiratory tract infection [None]
